FAERS Safety Report 10157108 (Version 4)
Quarter: 2014Q2

REPORT INFORMATION
  Report Type: Spontaneous
  Country: JP (occurrence: JP)
  Receive Date: 20140507
  Receipt Date: 20140630
  Transmission Date: 20141212
  Serious: Yes (Disabling, Other)
  Sender: FDA-Public Use
  Company Number: JP-MPIJNJ-2014JNJ003228

PATIENT
  Sex: 0

DRUGS (19)
  1. VELCADE [Suspect]
     Indication: PLASMA CELL MYELOMA
     Dosage: 1.8 MG, 1/WEEK
     Route: 058
     Dates: start: 20140122
  2. LENALIDOMIDE [Suspect]
     Indication: PLASMA CELL MYELOMA
     Dosage: UNK
     Route: 065
     Dates: start: 20130124, end: 20131206
  3. ZOMETA [Concomitant]
     Indication: BONE LESION
     Dosage: 4 MG, QD
     Dates: start: 20140226
  4. BAKTAR [Concomitant]
     Indication: INFECTION
     Dosage: 2 DF, QD
     Route: 048
  5. OPALMON [Concomitant]
     Indication: BACK PAIN
     Dosage: 15 ?G, UNK
     Route: 048
  6. SELBEX [Concomitant]
     Indication: GASTRITIS
     Dosage: 150 MG, UNK
     Route: 048
  7. LYRICA [Concomitant]
     Indication: BACK PAIN
     Dosage: 75 MG, UNK
     Route: 048
  8. BLOPRESS [Concomitant]
     Indication: HYPERTENSION
     Dosage: 4 MG, UNK
     Route: 048
  9. LENADEX [Concomitant]
     Indication: PLASMA CELL MYELOMA
     Dosage: UNK
     Route: 048
     Dates: start: 20130124, end: 20131206
  10. LENADEX [Concomitant]
     Dosage: 12 MG, 1/WEEK
     Route: 048
     Dates: start: 20140122
  11. GASTER D [Concomitant]
     Dosage: 40 MG, QD
     Route: 048
  12. NEUROTROPIN                        /00398601/ [Concomitant]
     Dosage: 16 IU, QD
     Route: 048
  13. RIZE                               /00624801/ [Concomitant]
     Dosage: 5 MG, UNK
     Route: 048
  14. METHYCOBAL [Concomitant]
     Dosage: 1500 ?G, QD
     Route: 048
  15. ASPIRIN [Concomitant]
     Dosage: 100 MG, UNK
     Route: 048
  16. PREDONINE                          /00016201/ [Concomitant]
     Indication: PLASMA CELL MYELOMA
     Dosage: UNK
     Dates: start: 20121214, end: 20121217
  17. PREDONINE                          /00016201/ [Concomitant]
     Dosage: 40 MG, UNK
     Dates: start: 20140122, end: 20140125
  18. ALKERAN                            /00006401/ [Concomitant]
     Indication: PLASMA CELL MYELOMA
     Dosage: UNK
     Route: 048
     Dates: start: 20121214, end: 20121217
  19. ALKERAN                            /00006401/ [Concomitant]
     Dosage: 8 MG, UNK
     Route: 048
     Dates: start: 20140122, end: 20140125

REACTIONS (2)
  - Retinal vein occlusion [Recovering/Resolving]
  - Macular oedema [Recovering/Resolving]
